FAERS Safety Report 5635950-1 (Version None)
Quarter: 2008Q1

REPORT INFORMATION
  Report Type: 
  Country: None (occurrence: None)
  Receive Date: 20080224
  Receipt Date: 20080215
  Transmission Date: 20080703
  Serious: Yes (Other)
  Sender: FDA-Public Use
  Company Number: PHBS2008DE02428

PATIENT
  Age: 49 Year
  Sex: Male

DRUGS (1)
  1. ZOLEDRONIC ACID [Suspect]
     Indication: METASTASES TO BONE

REACTIONS (15)
  - BONE DISORDER [None]
  - DENTAL PROSTHESIS PLACEMENT [None]
  - FISTULA [None]
  - IMPAIRED HEALING [None]
  - ORAL SURGERY [None]
  - OSTEOMYELITIS [None]
  - OSTEONECROSIS [None]
  - PURULENCE [None]
  - RHINITIS [None]
  - SINUS OPERATION [None]
  - SINUSITIS [None]
  - STREPTOCOCCAL INFECTION [None]
  - THERAPEUTIC PROCEDURE [None]
  - TOOTH EXTRACTION [None]
  - TOOTH LOSS [None]
